FAERS Safety Report 8996530 (Version 2)
Quarter: 2013Q1

REPORT INFORMATION
  Report Type: Spontaneous
  Country: US (occurrence: US)
  Receive Date: 20130104
  Receipt Date: 20130115
  Transmission Date: 20140127
  Serious: No
  Sender: FDA-Public Use
  Company Number: US-PFIZER INC-2013002199

PATIENT
  Age: 52 Year
  Sex: Male
  Weight: 113 kg

DRUGS (3)
  1. NEURONTIN [Suspect]
     Dosage: UNK
  2. GLUCOTROL [Suspect]
     Indication: DIABETES MELLITUS
     Dosage: UNK, 2X/DAY
  3. LIPITOR [Suspect]
     Indication: BLOOD CHOLESTEROL ABNORMAL
     Dosage: UNK

REACTIONS (2)
  - Pain [Unknown]
  - Pain in extremity [Recovered/Resolved]
